FAERS Safety Report 8543997-0 (Version None)
Quarter: 2012Q3

REPORT INFORMATION
  Report Type: 
  Country: None (occurrence: None)
  Receive Date: 20120727
  Receipt Date: 20120717
  Transmission Date: 20120928
  Serious: Yes (Hospitalization)
  Sender: FDA-Public Use
  Company Number: US-BAYER-2012-000087

PATIENT
  Age: 29 Year
  Sex: Female

DRUGS (4)
  1. YAZ [Suspect]
     Dosage: UNK
     Dates: start: 20070601, end: 20090301
  2. COCAINE [Concomitant]
     Indication: SUBSTANCE USE
     Dosage: UNK
  3. ANALGESICS [Concomitant]
     Indication: CHEST PAIN
     Dosage: UNK
  4. YASMIN [Suspect]
     Dosage: UNK
     Dates: start: 20070601, end: 20090301

REACTIONS (5)
  - THROMBOSIS [None]
  - INJURY [None]
  - PAIN [None]
  - DEEP VEIN THROMBOSIS [None]
  - PULMONARY EMBOLISM [None]
